FAERS Safety Report 5658301-5 (Version None)
Quarter: 2008Q1

REPORT INFORMATION
  Report Type: 
  Country: None (occurrence: None)
  Receive Date: 20080310
  Receipt Date: 20070221
  Transmission Date: 20080703
  Serious: No
  Sender: FDA-Public Use
  Company Number: US-BAYER-200710229BCC

PATIENT
  Age: 89 Year
  Sex: Male
  Weight: 73 kg

DRUGS (6)
  1. ALEVE [Suspect]
     Indication: MUSCLE SPASMS
     Dosage: UNIT DOSE: 220 MG
     Route: 048
  2. ALEVE [Suspect]
     Dosage: TOTAL DAILY DOSE: 440 MG  UNIT DOSE: 220 MG
     Route: 048
     Dates: start: 20070119
  3. ALEVE [Suspect]
     Dosage: UNIT DOSE: 220 MG
     Route: 048
  4. QUININE [Concomitant]
     Indication: MUSCLE SPASMS
  5. OXYBUTYNIN CHLORIDE [Concomitant]
  6. ASPIRIN [Concomitant]
     Indication: CARDIOVASCULAR EVENT PROPHYLAXIS
     Dosage: UNIT DOSE: 81 MG

REACTIONS (1)
  - HOT FLUSH [None]
